FAERS Safety Report 9680805 (Version 2)
Quarter: 2013Q4

REPORT INFORMATION
  Report Type: Spontaneous
  Country: SE (occurrence: SE)
  Receive Date: 20131111
  Receipt Date: 20131224
  Transmission Date: 20140711
  Serious: Yes (Congenital Anomaly)
  Sender: FDA-Public Use
  Company Number: PHHY2013SE127283

PATIENT
  Sex: 0

DRUGS (1)
  1. RITALIN [Suspect]
     Dosage: UNK UKN, UNK
     Route: 064

REACTIONS (2)
  - Cardiac disorder [Unknown]
  - Cardiac murmur [Unknown]
